FAERS Safety Report 6997990-X (Version None)
Quarter: 2010Q3

REPORT INFORMATION
  Report Type: 
  Country: None (occurrence: None)
  Receive Date: 20100920
  Receipt Date: 20100616
  Transmission Date: 20110219
  Serious: No
  Sender: FDA-Public Use
  Company Number: US-ASTRAZENECA-2010SE31172

PATIENT
  Age: 11989 Day
  Sex: Female

DRUGS (6)
  1. SEROQUEL [Suspect]
     Route: 048
     Dates: start: 20010529
  2. CLONAZEPAM [Concomitant]
     Dates: start: 20010430
  3. PAXIL [Concomitant]
     Dosage: 1 HQD
     Dates: start: 20010504
  4. TRAZODONE HCL [Concomitant]
     Dates: start: 20010504
  5. RISPERDAL [Concomitant]
     Dates: start: 20010504
  6. MET [Concomitant]
     Indication: TYPE 2 DIABETES MELLITUS
     Dosage: 500- 1000 QD
     Dates: start: 20040928

REACTIONS (5)
  - DYSPNOEA [None]
  - HYPERGLYCAEMIA [None]
  - OBESITY [None]
  - RENAL FAILURE CHRONIC [None]
  - TYPE 2 DIABETES MELLITUS [None]
